FAERS Safety Report 8779708 (Version 1)
Quarter: 2012Q4

REPORT INFORMATION
  Report Type: 
  Country: BR (occurrence: BR)
  Receive Date: 20120911
  Receipt Date: 20120911
  Transmission Date: 20130627
  Serious: Yes (Hospitalization)
  Sender: FDA-Public Use
  Company Number: BR-BAYER-2012-092201

PATIENT
  Age: 24 Year
  Sex: Female
  Weight: 70 kg

DRUGS (6)
  1. QLAIRA [Suspect]
     Indication: VAGINAL HAEMORRHAGE
     Dosage: 1 DF, QD
     Route: 048
     Dates: start: 201111
  2. ACLIMICINA [Concomitant]
     Dosage: 850 mg, TID
     Route: 042
     Dates: start: 201202, end: 201202
  3. CIPROFLOXACIN [Concomitant]
     Dosage: 1 DF, BID
     Route: 048
     Dates: start: 201202, end: 201202
  4. AMOXICILINA [Concomitant]
     Indication: PHARYNGEAL INFLAMMATION
     Dosage: 1 DF, TID
     Route: 048
     Dates: start: 201202, end: 201202
  5. AMOXICILINA [Concomitant]
     Indication: PHARYNGEAL INFLAMMATION
     Dosage: 500 mg, TID
     Route: 048
     Dates: start: 20120902
  6. TOPIRAMATE [Concomitant]
     Indication: MIGRAINE
     Dosage: 200 mcg/24hr, QID
     Route: 048
     Dates: start: 201207, end: 201208

REACTIONS (8)
  - None [Recovered/Resolved]
  - Amenorrhoea [Recovered/Resolved]
  - Metrorrhagia [Not Recovered/Not Resolved]
  - Pelvic fluid collection [Not Recovered/Not Resolved]
  - Pelvic pain [Not Recovered/Not Resolved]
  - Pyrexia [Recovered/Resolved]
  - Nervousness [Recovered/Resolved]
  - Nervousness [None]
